FAERS Safety Report 20124009 (Version 1)
Quarter: 2021Q4

REPORT INFORMATION
  Report Type: Spontaneous
  Country: ES (occurrence: ES)
  Receive Date: 20211129
  Receipt Date: 20211129
  Transmission Date: 20220303
  Serious: Yes (Other)
  Sender: FDA-Public Use
  Company Number: None

PATIENT
  Age: 79 Year
  Sex: Male

DRUGS (8)
  1. TORSEMIDE [Suspect]
     Active Substance: TORSEMIDE
     Indication: Cardiac disorder
     Dosage: 5 MG , TORASEMIDA (2351A)
     Route: 048
     Dates: start: 20210707, end: 20210707
  2. BISOPROLOL [Concomitant]
     Active Substance: BISOPROLOL
     Indication: Hypertension
     Dosage: 2.5 MG , BISOPROLOL (2328A)
     Route: 048
     Dates: start: 20210514
  3. AMLODIPINE [Concomitant]
     Active Substance: AMLODIPINE BESYLATE
     Indication: Hypertension
     Dosage: 10 MG , AMLODIPINO (2503A)
     Route: 048
  4. HYDRAZINE HYDROCHLORIDE [Concomitant]
     Indication: Hypertension
     Dosage: 50 MG , HIDRALAZINA HIDROCLORURO (1720CH)
     Route: 048
  5. TRINOMIA [Concomitant]
     Indication: Cerebrovascular accident prophylaxis
     Dosage: 1 DF ,28 CAPSULES , STRENGTH : 100 MG/40 MG/2,5 MG
     Route: 048
     Dates: start: 20210514
  6. HYDROCHLOROTHIAZIDE [Concomitant]
     Active Substance: HYDROCHLOROTHIAZIDE
     Indication: Diuretic therapy
     Dosage: 12.5 MG , HIDROCLOROTIAZIDA (1343A)
     Route: 048
     Dates: start: 20210514
  7. GLYCOPYRRONIUM\INDACATEROL [Concomitant]
     Active Substance: GLYCOPYRRONIUM\INDACATEROL
     Indication: Chronic obstructive pulmonary disease
     Dosage: STRENGTH : 85MCG / 43MCG , CONTAINER 30 CAPSULES + 1 INHALER
     Route: 055
     Dates: start: 20210514
  8. OMEPRAZOLE [Concomitant]
     Active Substance: OMEPRAZOLE
     Indication: Gastritis prophylaxis
     Dosage: 20 G , OMEPRAZOL (2141A)
     Route: 048
     Dates: start: 20210514

REACTIONS (1)
  - Rash pruritic [Recovering/Resolving]

NARRATIVE: CASE EVENT DATE: 20210707
